FAERS Safety Report 23295553 (Version 7)
Quarter: 2024Q3

REPORT INFORMATION
  Report Type: Spontaneous
  Country: US (occurrence: US)
  Receive Date: 20231214
  Receipt Date: 20240718
  Transmission Date: 20241017
  Serious: Yes (Death, Life-Threatening, Hospitalization, Other)
  Sender: INCYTE
  Company Number: US-INCYTE CORPORATION-2023IN012819

PATIENT

DRUGS (22)
  1. JAKAFI [Suspect]
     Active Substance: RUXOLITINIB
     Indication: Myelofibrosis
     Dosage: UNK
     Route: 065
     Dates: start: 20200702, end: 20210324
  2. JAKAFI [Suspect]
     Active Substance: RUXOLITINIB
     Dosage: 20 MILLIGRAM, BID (21 DAYS CYCLE)
     Route: 048
     Dates: start: 20210420, end: 20231031
  3. NAVITOCLAX [Suspect]
     Active Substance: NAVITOCLAX
     Indication: Myelofibrosis
     Dosage: 300 MILLIGRAM, QD (21 DAYS CYCLE)
     Route: 048
     Dates: start: 20210420, end: 20231031
  4. CEFTRIAXONE [Concomitant]
     Active Substance: CEFTRIAXONE\CEFTRIAXONE SODIUM
     Indication: Urinary tract infection
     Dosage: UNK
     Route: 065
     Dates: start: 20230625, end: 20230625
  5. FISH OIL [FISH OIL;VITAMIN E NOS] [Concomitant]
     Indication: Supplementation therapy
     Dosage: 1 DOSAGE FORM, QD
     Route: 065
     Dates: start: 20200624
  6. FERROUS SULFATE [FERROUS SULFATE HEPTAHYDRATE] [Concomitant]
     Indication: Supplementation therapy
     Dosage: 325 MILLIGRAM, QD
     Route: 065
     Dates: start: 20200624
  7. BIFIDOBACTERIUM ANIMALIS LACTIS [Concomitant]
     Active Substance: BIFIDOBACTERIUM ANIMALIS LACTIS
     Indication: Supplementation therapy
     Dosage: UNK, QD
     Route: 065
     Dates: start: 20200624
  8. CALCIUM ACETATE [Concomitant]
     Active Substance: CALCIUM ACETATE
     Indication: Supplementation therapy
     Dosage: 667 MILLIGRAM, QD
     Route: 065
     Dates: start: 20201209
  9. UBIQUINONE AMEL [Concomitant]
     Indication: Supplementation therapy
     Dosage: UNK, QD
     Route: 065
     Dates: start: 20181204
  10. CALCIUM ASCORBATE [Concomitant]
     Active Substance: CALCIUM ASCORBATE
     Indication: Supplementation therapy
     Dosage: 100 MILLIGRAM, QD
     Route: 065
     Dates: start: 20201209
  11. TUMS [Concomitant]
     Active Substance: CALCIUM CARBONATE
     Indication: Gastric pH decreased
     Dosage: 500 MILLIGRAM, AS NECESSARY
     Route: 065
     Dates: start: 20201209
  12. ROBITUSSIN (GUAIFENESIN) [Concomitant]
     Active Substance: GUAIFENESIN
     Indication: Cough
     Dosage: 5 MILLILITER, Q4H
     Route: 065
     Dates: start: 20210615
  13. ROBITUSSIN (GUAIFENESIN) [Concomitant]
     Active Substance: GUAIFENESIN
     Indication: Respiratory tract congestion
  14. CHLORHEXIDINE GLUCONATE [Concomitant]
     Active Substance: CHLORHEXIDINE GLUCONATE
     Indication: Prophylaxis
     Dosage: 0.018 GRAM, BID
     Route: 002
     Dates: start: 20210615
  15. DIPHENHYDRAMINE HYDROCHLORIDE [Concomitant]
     Active Substance: DIPHENHYDRAMINE HYDROCHLORIDE
     Indication: Insomnia
     Dosage: 25 MILLIGRAM, QD
     Route: 065
     Dates: start: 20210625
  16. TRIAMCINOLONE DIACETATE [Concomitant]
     Active Substance: TRIAMCINOLONE DIACETATE
     Indication: Seborrhoeic keratosis
     Dosage: 1 DOSAGE FORM 1 APPLICATION, BID
     Route: 065
     Dates: start: 20210915
  17. ALLOPURINOL [Concomitant]
     Active Substance: ALLOPURINOL
     Indication: Gout
     Dosage: 300 MILLIGRAM, QD
     Route: 065
     Dates: start: 20210624
  18. ALLOPURINOL [Concomitant]
     Active Substance: ALLOPURINOL
     Dosage: 300 MILLIGRAM, QD
     Route: 065
     Dates: start: 20230625
  19. ASPIRIN [Concomitant]
     Active Substance: ASPIRIN
     Indication: Cardiac disorder
     Dosage: 81 MILLIGRAM, QD
     Route: 065
     Dates: start: 20230625
  20. METOPROLOL TARTRATE [Concomitant]
     Active Substance: METOPROLOL TARTRATE
     Indication: Hypertension
     Dosage: 50 MILLIGRAM, QD
     Route: 065
     Dates: start: 20200624
  21. METOPROLOL TARTRATE [Concomitant]
     Active Substance: METOPROLOL TARTRATE
     Dosage: 25 MILLIGRAM, QD
     Route: 065
     Dates: start: 20230625
  22. ROSUVASTATIN CALCIUM [Concomitant]
     Active Substance: ROSUVASTATIN CALCIUM
     Indication: Blood cholesterol increased
     Dosage: 5 MILLIGRAM, QD
     Route: 065
     Dates: start: 20230625

REACTIONS (15)
  - Myelofibrosis [Fatal]
  - Hepatic failure [Fatal]
  - Disease progression [Fatal]
  - Acute kidney injury [Fatal]
  - Escherichia urinary tract infection [Recovered/Resolved]
  - Prostate cancer [Unknown]
  - Pneumonia [Unknown]
  - Syncope [Unknown]
  - Intracranial haematoma [Unknown]
  - Sepsis [Unknown]
  - Hepatic cirrhosis [Unknown]
  - Hypocalcaemia [Unknown]
  - Fall [Unknown]
  - Parainfluenzae virus infection [Unknown]
  - Cholelithiasis [Unknown]

NARRATIVE: CASE EVENT DATE: 20230117
